FAERS Safety Report 7406417-5 (Version None)
Quarter: 2011Q2

REPORT INFORMATION
  Report Type: 
  Country: None (occurrence: None)
  Receive Date: 20110411
  Receipt Date: 20110329
  Transmission Date: 20111010
  Serious: Yes (Hospitalization)
  Sender: FDA-Public Use
  Company Number: PHHY2011FI26230

PATIENT
  Age: 60 Year
  Sex: Female

DRUGS (2)
  1. EXFORGE [Suspect]
     Indication: HYPERTENSION
     Dosage: 80 MG VALS AND 5 MG AMLO
     Route: 048
  2. CORTISONE [Concomitant]

REACTIONS (1)
  - COLITIS COLLAGENOUS [None]
